FAERS Safety Report 9223585 (Version 5)
Quarter: 2013Q3

REPORT INFORMATION
  Report Type: Spontaneous
  Country: US (occurrence: US)
  Receive Date: 20130410
  Receipt Date: 20130905
  Transmission Date: 20140515
  Serious: Yes (Death, Hospitalization)
  Sender: FDA-Public Use
  Company Number: US-GLAXOSMITHKLINE-A1019477A

PATIENT
  Age: 46 Year
  Sex: Female

DRUGS (4)
  1. FLOLAN [Suspect]
     Indication: COR PULMONALE CHRONIC
     Dosage: 46NGKM CONTINUOUS
     Route: 042
     Dates: start: 20120406
  2. MUSCLE RELAXANT [Suspect]
     Indication: MUSCLE RELAXANT THERAPY
  3. REVATIO [Suspect]
     Indication: PRODUCT USED FOR UNKNOWN INDICATION
     Route: 065
  4. COUMADIN [Concomitant]

REACTIONS (7)
  - Pneumonia [Unknown]
  - Blood pressure decreased [Unknown]
  - Hypotension [Unknown]
  - Asthenia [Unknown]
  - Hyperhidrosis [Unknown]
  - Bone pain [Unknown]
  - Death [Fatal]
